FAERS Safety Report 4432009-6 (Version None)
Quarter: 2004Q3

REPORT INFORMATION
  Report Type: 
  Country: None (occurrence: None)
  Receive Date: 20040819
  Receipt Date: 20040809
  Transmission Date: 20050211
  Serious: Yes (Other)
  Sender: FDA-Public Use
  Company Number: US-JNJFOC-20040702270

PATIENT
  Age: 22 Month
  Sex: Male

DRUGS (2)
  1. CHILDREN'S TYLENOL CHERRY (ACETAMINOPHEN) SUSPENSION [Suspect]
     Dosage: 3360 MG, 1 IN 1 TOTAL, ORAL
     Route: 048
     Dates: start: 20040613, end: 20040613
  2. FLOURIDE (CHLORHEXIDINE-SODIUM FLOURIDE) [Concomitant]

REACTIONS (2)
  - ACCIDENTAL EXPOSURE [None]
  - DRUG LEVEL ABOVE THERAPEUTIC [None]
